FAERS Safety Report 12613875 (Version 1)
Quarter: 2016Q3

REPORT INFORMATION
  Report Type: Spontaneous
  Country: US (occurrence: None)
  Receive Date: 20160801
  Receipt Date: 20160801
  Transmission Date: 20161109
  Serious: No
  Sender: FDA-Public Use
  Company Number: None

PATIENT
  Age: 34 Year
  Sex: Female
  Weight: 100.25 kg

DRUGS (1)
  1. FLONASE [Suspect]
     Active Substance: FLUTICASONE PROPIONATE
     Indication: HYPERSENSITIVITY
     Dosage: 2 SPRAY(S) IN THE MORNING INHALATION
     Route: 055
     Dates: start: 20160715, end: 20160718

REACTIONS (2)
  - Nasal discomfort [None]
  - Epistaxis [None]

NARRATIVE: CASE EVENT DATE: 20160722
